FAERS Safety Report 22144088 (Version 1)
Quarter: 2023Q1

REPORT INFORMATION
  Report Type: Spontaneous
  Country: US (occurrence: US)
  Receive Date: 20230327
  Receipt Date: 20230327
  Transmission Date: 20230418
  Serious: Yes (Other)
  Sender: FDA-Public Use
  Company Number: US-drreddys-LIT/USA/23/0162707

PATIENT
  Age: 18 Year
  Sex: Female

DRUGS (2)
  1. SODIUM NITROPRUSSIDE [Suspect]
     Active Substance: SODIUM NITROPRUSSIDE
     Indication: Cardiac failure
  2. MILRINONE [Suspect]
     Active Substance: MILRINONE
     Indication: Cardiac failure

REACTIONS (2)
  - Cardiac failure [Unknown]
  - Drug ineffective [Unknown]
